FAERS Safety Report 23924028 (Version 1)
Quarter: 2024Q2

REPORT INFORMATION
  Report Type: Spontaneous
  Country: FR (occurrence: FR)
  Receive Date: 20240531
  Receipt Date: 20240531
  Transmission Date: 20240716
  Serious: Yes (Hospitalization)
  Sender: FDA-Public Use
  Company Number: FR-AFSSAPS-GR2024000503

PATIENT
  Age: 64 Year
  Sex: Female
  Weight: 57.2 kg

DRUGS (17)
  1. PREDNISONE [Suspect]
     Active Substance: PREDNISONE
     Indication: Product used for unknown indication
     Dosage: 20 MILLIGRAM
     Route: 048
  2. CALCIUM CARBONATE\CHOLECALCIFEROL [Suspect]
     Active Substance: CALCIUM CARBONATE\CHOLECALCIFEROL
     Indication: Product used for unknown indication
     Dosage: UNK
     Route: 048
  3. VALGANCICLOVIR HYDROCHLORIDE [Suspect]
     Active Substance: VALGANCICLOVIR HYDROCHLORIDE
     Indication: Antiviral prophylaxis
     Dosage: 900 MILLIGRAM, ONCE A DAY
     Route: 048
     Dates: start: 202305, end: 20240227
  4. MYCOPHENOLATE MOFETIL [Suspect]
     Active Substance: MYCOPHENOLATE MOFETIL
     Indication: Prophylaxis against transplant rejection
     Dosage: 1000 MILLIGRAM, ONCE A DAY
     Route: 048
     Dates: start: 202305
  5. BACTRIM [Suspect]
     Active Substance: SULFAMETHOXAZOLE\TRIMETHOPRIM
     Indication: Infection prophylaxis
     Dosage: 1 DOSAGE FORM
     Route: 048
     Dates: start: 202305
  6. TACROLIMUS [Suspect]
     Active Substance: TACROLIMUS
     Indication: Prophylaxis against transplant rejection
     Dosage: 2 MILLIGRAM, ONCE A DAY
     Route: 048
     Dates: start: 202305
  7. ALPRAZOLAM [Concomitant]
     Active Substance: ALPRAZOLAM
     Indication: Product used for unknown indication
     Dosage: 1 DOSAGE FORM, ONCE A DAY
     Route: 048
  8. PHLOROGLUCINOL\1,3,5-TRIMETHOXYBENZENE [Concomitant]
     Active Substance: PHLOROGLUCINOL\1,3,5-TRIMETHOXYBENZENE
     Indication: Product used for unknown indication
     Dosage: 2 DOSAGE FORM, 3 TIMES A DAY (2 TABLETS IF REQUIRED)
     Route: 048
  9. SODIUM ALGINATE\SODIUM BICARBONATE [Concomitant]
     Active Substance: SODIUM ALGINATE\SODIUM BICARBONATE
     Indication: Product used for unknown indication
     Dosage: UNK (1 VIAL, 8AM (MORNING), 12PM (NOON), 6PM (EVENING))
     Route: 048
  10. MIRTAZAPINE [Concomitant]
     Active Substance: MIRTAZAPINE
     Indication: Product used for unknown indication
     Dosage: 15 MILLIGRAM
     Route: 048
  11. PANTOPRAZOLE [Concomitant]
     Active Substance: PANTOPRAZOLE
     Indication: Product used for unknown indication
     Dosage: 1 DOSAGE FORM, TWO TIMES A DAY
     Route: 048
  12. NALOXEGOL [Concomitant]
     Active Substance: NALOXEGOL
     Indication: Product used for unknown indication
     Dosage: 1 DOSAGE FORM, EVERY MORNING
     Route: 048
  13. COLISTIMETHATE SODIUM [Concomitant]
     Active Substance: COLISTIMETHATE SODIUM
     Indication: Product used for unknown indication
     Dosage: UNK (2MUI IN AEROSOLS 8H(MORNING), 18H (EVENING))
     Route: 065
  14. ACETAMINOPHEN [Concomitant]
     Active Substance: ACETAMINOPHEN
     Indication: Product used for unknown indication
     Dosage: 1 DOSAGE FORM, 3 TIMES A DAY
     Route: 048
  15. POLYETHYLENE GLYCOL 4000 [Concomitant]
     Active Substance: POLYETHYLENE GLYCOL 4000
     Indication: Product used for unknown indication
     Dosage: 2 DOSAGE FORM, 3 TIMES A DAY (MORNING)
     Route: 048
  16. FLECAINIDE ACETATE [Concomitant]
     Active Substance: FLECAINIDE ACETATE
     Indication: Product used for unknown indication
     Dosage: 50 MILLIGRAM, TWO TIMES A DAY (8H (MORNING), 18H (EVENING))
     Route: 048
  17. APIXABAN [Concomitant]
     Active Substance: APIXABAN
     Indication: Product used for unknown indication
     Dosage: 1 DOSAGE FORM, TWO TIMES A DAY (8AM (MORNING), 6PM (EVENING))
     Route: 048

REACTIONS (1)
  - Haematotoxicity [Not Recovered/Not Resolved]

NARRATIVE: CASE EVENT DATE: 20230726
